FAERS Safety Report 26007804 (Version 1)
Quarter: 2025Q4

REPORT INFORMATION
  Report Type: Spontaneous
  Country: JP (occurrence: JP)
  Receive Date: 20251106
  Receipt Date: 20251106
  Transmission Date: 20260118
  Serious: Yes (Hospitalization, Other)
  Sender: GALDERMA
  Company Number: JP-GALDERMA-JP2025022381

PATIENT

DRUGS (1)
  1. ROZEX (METRONIDAZOLE) [Suspect]
     Active Substance: METRONIDAZOLE
     Indication: Wound complication
     Dosage: 1 DOSAGE FORM
     Route: 061

REACTIONS (1)
  - Hip fracture [Unknown]
